FAERS Safety Report 22533936 (Version 1)
Quarter: 2023Q2

REPORT INFORMATION
  Report Type: Report from Study
  Country: CA (occurrence: None)
  Receive Date: 20230608
  Receipt Date: 20230608
  Transmission Date: 20230722
  Serious: Yes (Hospitalization)
  Sender: FDA-Public Use
  Company Number: CA-ROCHE-3362250

PATIENT
  Age: 78 Year
  Sex: Female
  Weight: 61.1 kg

DRUGS (18)
  1. ATEZOLIZUMAB [Suspect]
     Active Substance: ATEZOLIZUMAB
     Indication: Non-small cell lung cancer metastatic
     Route: 041
     Dates: start: 20230425, end: 20230519
  2. ACETAMINOPHEN [Concomitant]
     Active Substance: ACETAMINOPHEN
     Indication: Pain in extremity
  3. ACETAMINOPHEN [Concomitant]
     Active Substance: ACETAMINOPHEN
     Indication: Back pain
  4. TYLENOL [Concomitant]
     Active Substance: ACETAMINOPHEN
  5. DOCUSATE SODIUM [Concomitant]
     Active Substance: DOCUSATE SODIUM
     Indication: Constipation
  6. VOLTAREN [Concomitant]
     Active Substance: DICLOFENAC SODIUM
  7. SENOKOT [Concomitant]
     Active Substance: SENNOSIDES
  8. CALCIUM [Concomitant]
     Active Substance: CALCIUM
     Indication: Osteoporosis
  9. CHLORTHALIDONE [Concomitant]
     Active Substance: CHLORTHALIDONE
     Indication: Oedema peripheral
  10. DENOSUMAB [Concomitant]
     Active Substance: DENOSUMAB
  11. EZETIMIBE [Concomitant]
     Active Substance: EZETIMIBE
     Indication: Hyperlipidaemia
  12. FLUTICASONE FUROATE [Concomitant]
     Active Substance: FLUTICASONE FUROATE
     Indication: Chronic obstructive pulmonary disease
  13. MAGNESIUM [Concomitant]
     Active Substance: MAGNESIUM
  14. ROSUVASTATIN [Concomitant]
     Active Substance: ROSUVASTATIN
  15. TELMISARTAN [Concomitant]
     Active Substance: TELMISARTAN
  16. AMLODIPINE BESYLATE [Concomitant]
     Active Substance: AMLODIPINE BESYLATE
     Indication: Hypertension
  17. PREGABALIN [Concomitant]
     Active Substance: PREGABALIN
  18. FUROSEMIDE [Concomitant]
     Active Substance: FUROSEMIDE

REACTIONS (1)
  - Hypoxia [Not Recovered/Not Resolved]

NARRATIVE: CASE EVENT DATE: 20230601
